FAERS Safety Report 6652235-5 (Version None)
Quarter: 2010Q1

REPORT INFORMATION
  Report Type: 
  Country: None (occurrence: None)
  Receive Date: 20100325
  Receipt Date: 20100313
  Transmission Date: 20100710
  Serious: Yes (Other)
  Sender: FDA-Public Use
  Company Number: US-PFIZER INC-2008083930

PATIENT
  Sex: Female
  Weight: 104 kg

DRUGS (30)
  1. CHANTIX [Suspect]
     Indication: SMOKING CESSATION THERAPY
     Dosage: 0.5 MG, 1X/DAY
     Route: 048
     Dates: start: 20080919
  2. CHANTIX [Interacting]
     Dosage: 0.5 MG, 1X/DAY
     Route: 048
     Dates: start: 20100218
  3. CHANTIX [Interacting]
     Dosage: 0.5 MG, 2X/DAY
     Dates: start: 20100201
  4. CHANTIX [Interacting]
     Dosage: 1 MG, 2X/DAY
     Route: 048
  5. OXYCONTIN [Interacting]
     Indication: ARTHRITIS
     Dosage: 80 MG, UNK
  6. PREDNISONE TAB [Concomitant]
     Indication: PNEUMONIA
     Dosage: 10 MG, 1X/DAY
  7. QUININE [Concomitant]
  8. LEVOTHYROXINE SODIUM [Concomitant]
  9. GEMFIBROZIL [Concomitant]
     Indication: BLOOD CHOLESTEROL INCREASED
     Dosage: 600 MG, 1X/DAY
  10. NEURONTIN [Concomitant]
  11. PLAQUENIL [Concomitant]
  12. VESICARE [Concomitant]
  13. FOLIC ACID [Concomitant]
  14. CALCIUM [Concomitant]
  15. VITAMIN D [Concomitant]
  16. ADVAIR DISKUS 100/50 [Concomitant]
  17. LORAZEPAM [Concomitant]
     Indication: DEPRESSION
  18. COMBIVENT [Concomitant]
     Route: 055
  19. LISINOPRIL [Concomitant]
  20. NYSTATIN [Concomitant]
  21. CELEBREX [Concomitant]
     Dosage: 200 MG, 6X/WEEK
     Route: 048
  22. PHOSPHORUS [Concomitant]
  23. LASIX [Concomitant]
     Dosage: 20 MG, UNK
  24. ACETYLSALICYLIC ACID [Concomitant]
     Dosage: 81 MG, 1X/DAY
  25. IRON [Concomitant]
  26. TRAZODONE HYDROCHLORIDE [Concomitant]
  27. SERETIDE MITE [Concomitant]
  28. KLOR-CON [Concomitant]
     Indication: MINERAL SUPPLEMENTATION
     Dosage: UNK
  29. ENABLEX [Concomitant]
     Indication: BLADDER DISORDER
     Dosage: 7.5 MG, 1X/DAY
     Route: 048
  30. LIDODERM [Concomitant]
     Dosage: UNK

REACTIONS (40)
  - ABASIA [None]
  - ABNORMAL DREAMS [None]
  - AGITATION [None]
  - ANXIETY [None]
  - ARTHRALGIA [None]
  - BACK PAIN [None]
  - CONFUSIONAL STATE [None]
  - CONSTIPATION [None]
  - DEPRESSED MOOD [None]
  - DEPRESSION [None]
  - DIARRHOEA [None]
  - DISTURBANCE IN ATTENTION [None]
  - DRUG EFFECT DECREASED [None]
  - DRUG INTERACTION [None]
  - EMOTIONAL DISORDER [None]
  - FALL [None]
  - FATIGUE [None]
  - FEELING ABNORMAL [None]
  - FEELING GUILTY [None]
  - FLATULENCE [None]
  - FRUSTRATION [None]
  - HEADACHE [None]
  - HYPERSOMNIA [None]
  - INCREASED APPETITE [None]
  - INSOMNIA [None]
  - IRRITABILITY [None]
  - LUNG INFECTION [None]
  - MALAISE [None]
  - MEMORY IMPAIRMENT [None]
  - MIDDLE INSOMNIA [None]
  - MUSCLE SPASMS [None]
  - MUSCULOSKELETAL PAIN [None]
  - NAUSEA [None]
  - PAIN [None]
  - PAIN IN EXTREMITY [None]
  - PERIPHERAL COLDNESS [None]
  - PRODUCTIVE COUGH [None]
  - SLEEP DISORDER [None]
  - STRESS [None]
  - WEIGHT INCREASED [None]
